FAERS Safety Report 12232986 (Version 1)
Quarter: 2016Q2

REPORT INFORMATION
  Report Type: Report from Study
  Country: US (occurrence: US)
  Receive Date: 20160403
  Receipt Date: 20160403
  Transmission Date: 20160815
  Serious: Yes (Other)
  Sender: FDA-Public Use
  Company Number: US-AMGEN-USASL2016034039

PATIENT
  Age: 83 Year
  Sex: Female

DRUGS (1)
  1. REPATHA [Suspect]
     Active Substance: EVOLOCUMAB
     Indication: PRODUCT USED FOR UNKNOWN INDICATION
     Dosage: UNK, UNK
     Route: 065

REACTIONS (8)
  - Gastrointestinal sounds abnormal [Unknown]
  - Blister [Unknown]
  - Diarrhoea [Unknown]
  - Pain [Unknown]
  - Cholestasis [Unknown]
  - Malaise [Unknown]
  - Blood glucose increased [Unknown]
  - Abdominal distension [Unknown]
